FAERS Safety Report 25829154 (Version 1)
Quarter: 2025Q3

REPORT INFORMATION
  Report Type: Spontaneous
  Country: EU (occurrence: EU)
  Receive Date: 20250922
  Receipt Date: 20250922
  Transmission Date: 20251020
  Serious: Yes (Hospitalization)
  Sender: ALK-ABELLO
  Company Number: EU-ALKABELLO A/S-2025AA003122

PATIENT

DRUGS (3)
  1. GRAZAX [Suspect]
     Active Substance: PHLEUM PRATENSE POLLEN
     Indication: Seasonal allergy
  2. CETIRIZINE [Concomitant]
     Active Substance: CETIRIZINE HYDROCHLORIDE
     Indication: Seasonal allergy
     Route: 048
  3. DESLORATADINE [Concomitant]
     Active Substance: DESLORATADINE
     Route: 048

REACTIONS (12)
  - Foaming at mouth [Unknown]
  - Oropharyngeal pain [Recovered/Resolved]
  - Odynophagia [Recovered/Resolved]
  - Swollen tongue [Unknown]
  - Localised oedema [Unknown]
  - Pharyngeal swelling [Unknown]
  - Lip swelling [Unknown]
  - Oropharyngeal discomfort [Unknown]
  - Intentional underdose [Unknown]
  - Wrong technique in product usage process [Unknown]
  - Off label use [Unknown]
  - Drug monitoring procedure not performed [Unknown]

NARRATIVE: CASE EVENT DATE: 20250912
